FAERS Safety Report 7648034-8 (Version None)
Quarter: 2011Q3

REPORT INFORMATION
  Report Type: 
  Country: None (occurrence: None)
  Receive Date: 20110801
  Receipt Date: 20110721
  Transmission Date: 20111222
  Serious: Yes (Hospitalization, Other)
  Sender: FDA-Public Use
  Company Number: US-BAYER-2011-029632

PATIENT
  Age: 31 Year
  Sex: Female
  Weight: 70.295 kg

DRUGS (10)
  1. YASMIN [Suspect]
     Indication: MENSTRUATION IRREGULAR
  2. ERYTHROMYCIN [Concomitant]
     Dosage: UNK
     Dates: start: 20050101, end: 20080101
  3. LEVAQUIN [Concomitant]
     Dosage: UNK
     Dates: start: 20050101, end: 20080101
  4. MEPROZINE [Concomitant]
     Dates: start: 20080201
  5. HYDROCODONE [Concomitant]
     Dosage: UNK
     Dates: start: 20080321
  6. PROMETHAZINE [Concomitant]
     Dosage: UNK
     Dates: start: 20080321
  7. YASMIN [Suspect]
     Indication: CONTRACEPTION
     Dosage: UNK
     Route: 048
     Dates: start: 20060101, end: 20080101
  8. ZITHROMAX [Concomitant]
     Dosage: UNK
     Dates: start: 20050101, end: 20080101
  9. YASMIN [Suspect]
     Indication: MENORRHAGIA
  10. PHENTERMINE [Concomitant]

REACTIONS (3)
  - CHOLELITHIASIS [None]
  - CHOLECYSTITIS CHRONIC [None]
  - GALLBLADDER DISORDER [None]
